FAERS Safety Report 6750251-6 (Version None)
Quarter: 2010Q2

REPORT INFORMATION
  Report Type: 
  Country: None (occurrence: None)
  Receive Date: 20100601
  Receipt Date: 20100524
  Transmission Date: 20101027
  Serious: Yes (Death)
  Sender: FDA-Public Use
  Company Number: CO-JNJFOC-20100509526

PATIENT
  Sex: Female

DRUGS (1)
  1. DORIBAX [Suspect]
     Indication: DRUG USE FOR UNKNOWN INDICATION
     Route: 041

REACTIONS (1)
  - DEATH [None]
